FAERS Safety Report 10635937 (Version 1)
Quarter: 2014Q4

REPORT INFORMATION
  Report Type: Spontaneous
  Country: US (occurrence: US)
  Receive Date: 20141205
  Receipt Date: 20141205
  Transmission Date: 20150529
  Serious: No
  Sender: FDA-Public Use
  Company Number: US-BAYER-2014-179506

PATIENT
  Age: 77 Year
  Sex: Female
  Weight: 92.97 kg

DRUGS (9)
  1. SIMVASTATIN. [Concomitant]
     Active Substance: SIMVASTATIN
  2. ALEVE [Suspect]
     Active Substance: NAPROXEN SODIUM
     Indication: FIBROMYALGIA
     Dosage: 4-6 TABLETS PER DAY
     Route: 048
  3. OMEPRAZOLE. [Concomitant]
     Active Substance: OMEPRAZOLE
  4. GLUCOSAMINE [Concomitant]
     Active Substance: GLUCOSAMINE
  5. ALBUTEROL. [Concomitant]
     Active Substance: ALBUTEROL
  6. METOPROLOL [Concomitant]
     Active Substance: METOPROLOL
  7. BUDESONIDE. [Concomitant]
     Active Substance: BUDESONIDE
  8. ALEVE [Suspect]
     Active Substance: NAPROXEN SODIUM
     Indication: FIBROMYALGIA
     Dosage: 3 DF, BID
     Route: 048
     Dates: start: 2013
  9. BUSPIRONE [Concomitant]
     Active Substance: BUSPIRONE HYDROCHLORIDE

REACTIONS (4)
  - Extra dose administered [None]
  - Gastric disorder [Recovered/Resolved]
  - Incorrect drug administration duration [None]
  - Drug ineffective [None]

NARRATIVE: CASE EVENT DATE: 2013
